FAERS Safety Report 8358671-3 (Version None)
Quarter: 2012Q2

REPORT INFORMATION
  Report Type: 
  Country: None (occurrence: None)
  Receive Date: 20120514
  Receipt Date: 20120509
  Transmission Date: 20120825
  Serious: Yes (Other)
  Sender: FDA-Public Use
  Company Number: GB-MERCK-1205USA01887

PATIENT
  Age: 67 Year
  Sex: Female

DRUGS (9)
  1. FOSAMAX [Suspect]
     Route: 048
  2. TEMAZEPAM [Concomitant]
     Route: 065
  3. CITALOPRAM [Concomitant]
     Route: 065
  4. ACETAMINOPHEN AND CODEINE PHOSPHATE [Concomitant]
     Route: 065
  5. DIAZEPAM [Concomitant]
     Route: 065
  6. DURAGESIC-100 [Concomitant]
     Route: 065
  7. THEOPHYLLINE [Concomitant]
     Route: 065
  8. FOLIC ACID [Concomitant]
     Route: 065
  9. CACIT VITAMINE D3 [Concomitant]
     Route: 065

REACTIONS (1)
  - EPISTAXIS [None]
